FAERS Safety Report 7293594-2 (Version None)
Quarter: 2011Q1

REPORT INFORMATION
  Report Type: 
  Country: None (occurrence: None)
  Receive Date: 20110215
  Receipt Date: 20110211
  Transmission Date: 20110831
  Serious: Yes (Other)
  Sender: FDA-Public Use
  Company Number: A0775431A

PATIENT
  Age: 31 Year
  Sex: Male
  Weight: 86.4 kg

DRUGS (1)
  1. AVANDIA [Suspect]
     Dosage: 8MG PER DAY
     Route: 048
     Dates: start: 20040101, end: 20080410

REACTIONS (4)
  - HYPERTENSION [None]
  - RENAL INJURY [None]
  - SWELLING [None]
  - LIVER INJURY [None]
